FAERS Safety Report 8764930 (Version 1)
Quarter: 2012Q4

REPORT INFORMATION
  Report Type: 
  Country: US (occurrence: US)
  Receive Date: 20120902
  Receipt Date: 20120902
  Transmission Date: 20130627
  Serious: Yes (Other)
  Sender: FDA-Public Use
  Company Number: US-AMGEN-USASP2012054880

PATIENT
  Age: 63 Year
  Sex: Female

DRUGS (1)
  1. ENBREL [Suspect]
     Indication: RHEUMATOID ARTHRITIS
     Dosage: UNK UNK, q2wk
     Dates: start: 20110705

REACTIONS (12)
  - Cholecystectomy [Recovered/Resolved]
  - Musculoskeletal stiffness [Not Recovered/Not Resolved]
  - Oedema peripheral [Not Recovered/Not Resolved]
  - Foot deformity [Recovered/Resolved]
  - Malaise [Recovered/Resolved]
  - Abdominal distension [Recovered/Resolved]
  - Gastrointestinal pain [Recovered/Resolved]
  - Retching [Recovered/Resolved]
  - Tooth fracture [Recovered/Resolved]
  - Dental caries [Recovered/Resolved]
  - Carpal tunnel syndrome [Not Recovered/Not Resolved]
  - Diarrhoea [Recovered/Resolved]
